FAERS Safety Report 20654047 (Version 4)
Quarter: 2022Q3

REPORT INFORMATION
  Report Type: Report from Study
  Country: US (occurrence: US)
  Receive Date: 20220330
  Receipt Date: 20220702
  Transmission Date: 20221027
  Serious: Yes (Other)
  Sender: FDA-Public Use
  Company Number: US-ALXN-A202112532

PATIENT
  Sex: Male

DRUGS (1)
  1. STRENSIQ [Suspect]
     Active Substance: ASFOTASE ALFA
     Indication: Hypophosphatasia
     Dosage: UNK
     Route: 065

REACTIONS (15)
  - Vomiting [Unknown]
  - Injection site rash [Recovering/Resolving]
  - Grunting [Unknown]
  - Lip discolouration [Unknown]
  - Exposure to SARS-CoV-2 [Unknown]
  - Pyrexia [Unknown]
  - Suspected COVID-19 [Recovering/Resolving]
  - Limb discomfort [Unknown]
  - Bone pain [Unknown]
  - Genital discolouration [Unknown]
  - Gait disturbance [Unknown]
  - Speech disorder developmental [Unknown]
  - Rash [Unknown]
  - Injection site swelling [Unknown]
  - Injection site bruising [Unknown]

NARRATIVE: CASE EVENT DATE: 20211101
